FAERS Safety Report 5057534-9 (Version None)
Quarter: 2006Q3

REPORT INFORMATION
  Report Type: 
  Country: None (occurrence: None)
  Receive Date: 20060721
  Receipt Date: 20051107
  Transmission Date: 20061208
  Serious: No
  Sender: FDA-Public Use
  Company Number: US-GLAXOSMITHKLINE-A0581191A

PATIENT
  Age: 38 Year
  Sex: Female

DRUGS (4)
  1. AVANDIA [Suspect]
     Dates: end: 20051001
  2. GLUCOTROL [Concomitant]
  3. GLUCOPHAGE [Concomitant]
     Route: 065
  4. LOTREL [Concomitant]

REACTIONS (3)
  - AGITATION [None]
  - HEADACHE [None]
  - HEART RATE INCREASED [None]
